FAERS Safety Report 5904147-X (Version None)
Quarter: 2008Q4

REPORT INFORMATION
  Report Type: 
  Country: None (occurrence: None)
  Receive Date: 20081001
  Receipt Date: 20080923
  Transmission Date: 20090506
  Serious: Yes (Disabling)
  Sender: FDA-Public Use
  Company Number: DK-RANBAXY-2008RR-18303

PATIENT
  Sex: Female
  Weight: 82 kg

DRUGS (4)
  1. SERTRALINE RANBAXY FILM COATED TABLETS 100MG [Suspect]
     Indication: DEPRESSION
     Dosage: 125 MG, QD
     Route: 048
     Dates: start: 20071101, end: 20080614
  2. SIMVASTATIN [Concomitant]
     Indication: HYPERCHOLESTEROLAEMIA
     Dosage: UNK
     Route: 048
     Dates: start: 20070201
  3. HJERTEMAGNYL [Concomitant]
     Dosage: 75 MG, UNK
     Route: 048
  4. LANSOPRAZOLE [Concomitant]
     Dosage: 15 MG, QD

REACTIONS (1)
  - VISUAL ACUITY REDUCED [None]
